FAERS Safety Report 10306796 (Version 1)
Quarter: 2014Q3

REPORT INFORMATION
  Report Type: Spontaneous
  Country: US (occurrence: US)
  Receive Date: 20140715
  Receipt Date: 20140715
  Transmission Date: 20150326
  Serious: No
  Sender: FDA-Public Use
  Company Number: US-GILEAD-2014-0108730

PATIENT
  Age: 62 Year
  Sex: Male

DRUGS (13)
  1. LETAIRIS [Suspect]
     Active Substance: AMBRISENTAN
     Indication: PULMONARY ARTERIAL HYPERTENSION
     Dosage: 10 MG, QD
     Route: 065
     Dates: start: 20140613, end: 20140707
  2. TYLENOL [Concomitant]
     Active Substance: ACETAMINOPHEN
  3. LETAIRIS [Suspect]
     Active Substance: AMBRISENTAN
     Dosage: 5 MG, QD
     Route: 065
     Dates: end: 201406
  4. METOLAZONE. [Concomitant]
     Active Substance: METOLAZONE
  5. COREG [Concomitant]
     Active Substance: CARVEDILOL
  6. LETAIRIS [Suspect]
     Active Substance: AMBRISENTAN
     Dosage: 5 UNK, UNK
     Route: 065
     Dates: start: 201407
  7. ADVAIR HFA [Concomitant]
     Active Substance: FLUTICASONE PROPIONATE\SALMETEROL XINAFOATE
  8. FUROSEMIDE. [Concomitant]
     Active Substance: FUROSEMIDE
  9. ELIQUIS [Concomitant]
     Active Substance: APIXABAN
  10. ALLOPURINOL. [Concomitant]
     Active Substance: ALLOPURINOL
  11. DIGOXIN. [Concomitant]
     Active Substance: DIGOXIN
  12. LEVOTHYROXINE [Concomitant]
     Active Substance: LEVOTHYROXINE
  13. CARDIZEM CD [Concomitant]
     Active Substance: DILTIAZEM HYDROCHLORIDE

REACTIONS (1)
  - Fluid retention [Recovering/Resolving]

NARRATIVE: CASE EVENT DATE: 20140620
